FAERS Safety Report 6628649-6 (Version None)
Quarter: 2010Q1

REPORT INFORMATION
  Report Type: 
  Country: None (occurrence: None)
  Receive Date: 20100311
  Receipt Date: 20100303
  Transmission Date: 20100710
  Serious: Yes (Hospitalization, Other)
  Sender: FDA-Public Use
  Company Number: CH-ABBOTT-09P-151-0607349-00

PATIENT
  Sex: Female

DRUGS (13)
  1. HUMIRA [Suspect]
     Indication: RHEUMATOID ARTHRITIS
     Dates: start: 20081112, end: 20091117
  2. METHOTREXATE [Suspect]
     Indication: RHEUMATOID ARTHRITIS
     Dates: start: 20080914, end: 20091117
  3. CONDROSULF [Concomitant]
     Indication: DRUG USE FOR UNKNOWN INDICATION
  4. DOXIUM [Concomitant]
     Indication: DRUG USE FOR UNKNOWN INDICATION
  5. OMEPRAZOLE [Concomitant]
     Indication: DRUG USE FOR UNKNOWN INDICATION
  6. KEPPRA [Concomitant]
     Indication: DRUG USE FOR UNKNOWN INDICATION
  7. DEPAKINE CHRONO [Concomitant]
     Indication: DRUG USE FOR UNKNOWN INDICATION
  8. BIOTINE [Concomitant]
     Indication: DRUG USE FOR UNKNOWN INDICATION
  9. DAFALGAN [Concomitant]
     Indication: DRUG USE FOR UNKNOWN INDICATION
     Dosage: 1 G - 4 TIMES DAILY IN RESERVE
  10. EUTHYROX [Concomitant]
     Indication: DRUG USE FOR UNKNOWN INDICATION
  11. CALCIMAGON-D3 [Concomitant]
     Indication: DRUG USE FOR UNKNOWN INDICATION
  12. TEMESTA [Concomitant]
     Indication: SIMPLE PARTIAL SEIZURES
     Dosage: 1 MG - 3 TIMES DAILY IN RESERVE
  13. RITUXIMAB [Concomitant]
     Indication: RHEUMATOID ARTHRITIS
     Dates: start: 20100201

REACTIONS (21)
  - ANOSMIA [None]
  - DYSTONIA [None]
  - EPILEPSY [None]
  - HEADACHE [None]
  - HYPERTHYROIDISM [None]
  - HYPOAESTHESIA [None]
  - INFLAMMATION [None]
  - LUNG NEOPLASM [None]
  - MENINGITIS [None]
  - MENINGITIS LEPTOSPIRAL [None]
  - MUSCULAR WEAKNESS [None]
  - NERVOUS SYSTEM DISORDER [None]
  - ORAL HERPES [None]
  - PARAESTHESIA [None]
  - PARTIAL SEIZURES WITH SECONDARY GENERALISATION [None]
  - PHOTOPHOBIA [None]
  - POSTICTAL STATE [None]
  - SIMPLE PARTIAL SEIZURES [None]
  - TACHYCARDIA [None]
  - TONGUE INJURY [None]
  - TONIC CLONIC MOVEMENTS [None]
